FAERS Safety Report 22640214 (Version 1)
Quarter: 2023Q2

REPORT INFORMATION
  Report Type: Spontaneous
  Country: US (occurrence: None)
  Receive Date: 20230623
  Receipt Date: 20230623
  Transmission Date: 20230721
  Serious: No
  Sender: FDA-Public Use
  Company Number: None

PATIENT
  Age: 77 Year
  Weight: 192 kg

DRUGS (22)
  1. ABIRATERONE [Suspect]
     Active Substance: ABIRATERONE
     Indication: Prostate cancer
     Dosage: FREQUENCY : DAILY;?
     Route: 048
     Dates: start: 202303
  2. ACETAMINOPHEN [Concomitant]
  3. ASCORBIC ACID [Concomitant]
     Active Substance: ASCORBIC ACID
  4. EXCEDRIN [Concomitant]
     Active Substance: ACETAMINOPHEN\ASPIRIN\CAFFEINE
  5. VITAMIN D3 [Concomitant]
     Active Substance: CHOLECALCIFEROL
  6. DEXAMETHASONE [Concomitant]
  7. PROSCAR [Concomitant]
     Active Substance: FINASTERIDE
  8. GABAPENTIN [Concomitant]
  9. NORCO [Concomitant]
     Active Substance: ACETAMINOPHEN\HYDROCODONE BITARTRATE
  10. MAGNESIUM [Concomitant]
  11. VITAMINS [Concomitant]
     Active Substance: VITAMINS
  12. ALEVE [Concomitant]
     Active Substance: NAPROXEN SODIUM
  13. NITROSTAT [Concomitant]
     Active Substance: NITROGLYCERIN
  14. OMPERAZONE [Concomitant]
  15. OXYCODONE [Concomitant]
  16. PREDNISONE [Concomitant]
     Active Substance: PREDNISONE
  17. TAMSULOSIN [Concomitant]
  18. DULOXETINE [Concomitant]
  19. LEVOFLOXACIN [Concomitant]
  20. METRONIDAZOLE [Concomitant]
  21. LUPRON [Concomitant]
  22. GLIPIZIDE [Concomitant]

REACTIONS (1)
  - Blood glucose increased [None]
